FAERS Safety Report 4546014-2 (Version None)
Quarter: 2005Q1

REPORT INFORMATION
  Report Type: 
  Country: None (occurrence: None)
  Receive Date: 20050106
  Receipt Date: 20041229
  Transmission Date: 20050727
  Serious: Yes (Death, Life-Threatening)
  Sender: FDA-Public Use
  Company Number: 200414896FR

PATIENT
  Age: 74 Year
  Sex: Female

DRUGS (4)
  1. AMAREL [Suspect]
     Route: 048
  2. HYCAMTIN [Suspect]
     Indication: OVARIAN CANCER
     Route: 042
     Dates: start: 20041103, end: 20041208
  3. DIAMICRON [Suspect]
     Route: 048
  4. XANAX [Suspect]
     Route: 048

REACTIONS (11)
  - ABDOMINAL PAIN [None]
  - DEHYDRATION [None]
  - DIARRHOEA [None]
  - HYPOVOLAEMIC SHOCK [None]
  - METASTASES TO PERITONEUM [None]
  - NEOPLASM RECURRENCE [None]
  - PLATELET COUNT DECREASED [None]
  - RECTAL HAEMORRHAGE [None]
  - RENAL FAILURE ACUTE [None]
  - TACHYCARDIA [None]
  - VOMITING [None]
